FAERS Safety Report 13610070 (Version 1)
Quarter: 2017Q2

REPORT INFORMATION
  Report Type: Spontaneous
  Country: JP (occurrence: JP)
  Receive Date: 20170604
  Receipt Date: 20170604
  Transmission Date: 20170830
  Serious: Yes (Life-Threatening, Other)
  Sender: FDA-Public Use
  Company Number: JP-ACCORD-052089

PATIENT
  Age: 49 Year
  Sex: Female

DRUGS (6)
  1. FOLINIC ACID [Suspect]
     Active Substance: LEUCOVORIN
     Indication: GESTATIONAL TROPHOBLASTIC TUMOUR
     Dosage: DAY 2: 15 MG Q 6 HOURS 4 DOSES, 24 HOURS AFTER THE FIRST METHOTREXATE DOSE
  2. DACTINOMYCIN [Suspect]
     Active Substance: DACTINOMYCIN
     Indication: GESTATIONAL TROPHOBLASTIC TUMOUR
     Dosage: DAY 1 AND DAY 2,??EMA-CO
  3. CYCLOPHOSPHAMIDE/CYCLOPHOSPHAMIDE MONOHYDRATE [Suspect]
     Active Substance: CYCLOPHOSPHAMIDE
     Indication: GESTATIONAL TROPHOBLASTIC TUMOUR
     Dosage: DAY 8
  4. ETOPOSIDE. [Suspect]
     Active Substance: ETOPOSIDE
     Indication: GESTATIONAL TROPHOBLASTIC TUMOUR
     Dosage: DAY 1 AND DAY 2
  5. METHOTREXATE. [Suspect]
     Active Substance: METHOTREXATE
     Indication: GESTATIONAL TROPHOBLASTIC TUMOUR
     Dosage: DAY-1:FOLLOWED BY 200 MG/M2 OVER 12 H
  6. VINCRISTINE [Suspect]
     Active Substance: VINCRISTINE
     Indication: GESTATIONAL TROPHOBLASTIC TUMOUR
     Dosage: DAY 8

REACTIONS (6)
  - Endocarditis [Recovering/Resolving]
  - Staphylococcal infection [Recovered/Resolved]
  - Renal infarct [Recovering/Resolving]
  - Renal embolism [Recovering/Resolving]
  - Uterine abscess [Recovering/Resolving]
  - Febrile neutropenia [Recovering/Resolving]
